FAERS Safety Report 21772242 (Version 1)
Quarter: 2022Q4

REPORT INFORMATION
  Report Type: Report from Study
  Country: US (occurrence: US)
  Receive Date: 20221223
  Receipt Date: 20221223
  Transmission Date: 20230113
  Serious: No
  Sender: FDA-Public Use
  Company Number: US-ABBVIE-4208735

PATIENT
  Sex: Female

DRUGS (1)
  1. HUMIRA [Suspect]
     Active Substance: ADALIMUMAB
     Indication: Rheumatoid arthritis
     Dosage: FORM STRENGTH: 40 MILLIGRAM
     Route: 058

REACTIONS (5)
  - Sleep disorder [Not Recovered/Not Resolved]
  - Pain [Recovering/Resolving]
  - Fibromyalgia [Not Recovered/Not Resolved]
  - Anxiety [Not Recovered/Not Resolved]
  - Depression [Not Recovered/Not Resolved]
